FAERS Safety Report 14227832 (Version 2)
Quarter: 2017Q4

REPORT INFORMATION
  Report Type: Spontaneous
  Country: BR (occurrence: BR)
  Receive Date: 20171127
  Receipt Date: 20171220
  Transmission Date: 20180321
  Serious: Yes (Death, Other)
  Sender: FDA-Public Use
  Company Number: BR-PFIZER INC-2017505033

PATIENT
  Age: 54 Year
  Sex: Male
  Weight: 39 kg

DRUGS (21)
  1. POTASSIUM CHLORIDE. [Concomitant]
     Active Substance: POTASSIUM CHLORIDE
     Dosage: 20ML; 8/8H
  2. TAZOCIN [Concomitant]
     Active Substance: PIPERACILLIN SODIUM\TAZOBACTAM SODIUM
     Dosage: TAZOCIN 4.5G; 8/8H
     Route: 042
  3. NOREPINEPHRINE. [Concomitant]
     Active Substance: NOREPINEPHRINE
     Dosage: UNK
  4. ATROPINE. [Concomitant]
     Active Substance: ATROPINE
     Dosage: 1 GTT; 12/12H
     Route: 060
  5. BACTRIM [Concomitant]
     Active Substance: SULFAMETHOXAZOLE\TRIMETHOPRIM
     Dosage: 2 DF; ONCE A DAY
  6. BUSCOPAN [Concomitant]
     Active Substance: BUTYLSCOPOLAMINE BROMIDE
     Dosage: 20MG; 8/8H
     Route: 042
  7. PANTOZOL [Concomitant]
     Active Substance: PANTOPRAZOLE SODIUM
     Dosage: 40MG; ONCE A DAY
     Route: 042
  8. ZYVOX [Suspect]
     Active Substance: LINEZOLID
     Indication: SEPSIS
     Dosage: 600 MG, 2X/DAY (12/12H)
     Route: 042
     Dates: start: 20170720
  9. RISPERIDON [Concomitant]
     Active Substance: RISPERIDONE
     Dosage: 2MG; 12/12H
  10. IMOSEC [Concomitant]
     Active Substance: LOPERAMIDE
     Dosage: 2MG; 8/8H
  11. FENTANYL. [Concomitant]
     Active Substance: FENTANYL
     Indication: SEDATION
     Dosage: UNK
  12. ZYVOX [Suspect]
     Active Substance: LINEZOLID
     Dosage: 600 MG, 2X/DAY(12/12H)
     Route: 042
     Dates: end: 20170809
  13. FLEBOCORTID [Concomitant]
     Active Substance: HYDROCORTISONE SODIUM SUCCINATE
     Dosage: 100MG; 12/12H
     Route: 042
  14. FLORATIL /00838001/ [Concomitant]
     Active Substance: SACCHAROMYCES CEREVISIAE
     Dosage: 100MG; 12/12H
  15. FRONTAL [Concomitant]
     Active Substance: ALPRAZOLAM
     Dosage: 1MG; 12/12H
  16. KLARICID UD [Concomitant]
     Active Substance: CLARITHROMYCIN
     Dosage: 500MG;ONCE A DAY
  17. MAGNEN B6 [Concomitant]
     Dosage: ONCE A DAY
  18. RIVOTRIL [Concomitant]
     Active Substance: CLONAZEPAM
     Dosage: 2MG; ONCE A DAY
  19. MERONEM [Concomitant]
     Active Substance: MEROPENEM
     Dosage: 1G; 8/8H
     Route: 042
  20. MIDAZOLAM [Concomitant]
     Active Substance: MIDAZOLAM HYDROCHLORIDE
     Indication: SEDATION
     Dosage: UNK
  21. LASIX [Concomitant]
     Active Substance: FUROSEMIDE
     Dosage: 40MG; 8/8H
     Route: 042

REACTIONS (6)
  - Thrombocytopenia [Unknown]
  - Septic shock [Fatal]
  - Acquired immunodeficiency syndrome [Fatal]
  - Disease progression [Fatal]
  - Pneumonia [Fatal]
  - Haemorrhage [Unknown]

NARRATIVE: CASE EVENT DATE: 2017
